FAERS Safety Report 5625395-2 (Version None)
Quarter: 2008Q1

REPORT INFORMATION
  Report Type: 
  Country: None (occurrence: None)
  Receive Date: 20080211
  Receipt Date: 20080204
  Transmission Date: 20080703
  Serious: Yes (Death)
  Sender: FDA-Public Use
  Company Number: 2008-00795

PATIENT
  Age: 72 Year
  Sex: Female

DRUGS (3)
  1. VERAPAMIL [Suspect]
  2. PROPOXYPHENE HYDROCHLORIDE AND ACETAMINOPHEN TAB [Suspect]
  3. TRANDOLAPRIL [Suspect]

REACTIONS (1)
  - DEATH [None]
